FAERS Safety Report 6808868-6 (Version None)
Quarter: 2010Q2

REPORT INFORMATION
  Report Type: 
  Country: None (occurrence: None)
  Receive Date: 20100630
  Receipt Date: 20091117
  Transmission Date: 20101027
  Serious: No
  Sender: FDA-Public Use
  Company Number: US-PFIZER INC-2009268942

PATIENT
  Age: 27 Year
  Sex: Male

DRUGS (3)
  1. XANAX [Suspect]
     Route: 048
  2. ZOLOFT [Suspect]
     Route: 048
  3. AMBIEN [Suspect]

REACTIONS (2)
  - ABNORMAL BEHAVIOUR [None]
  - THINKING ABNORMAL [None]
